FAERS Safety Report 19654779 (Version 1)
Quarter: 2021Q3

REPORT INFORMATION
  Report Type: Other
  Country: US (occurrence: US)
  Receive Date: 20210804
  Receipt Date: 20210804
  Transmission Date: 20211014
  Serious: Yes (Other)
  Sender: FDA-Public Use
  Company Number: US-ROCHE-2879441

PATIENT

DRUGS (3)
  1. CAPECITABINE. [Suspect]
     Active Substance: CAPECITABINE
     Indication: COLORECTAL CANCER
     Route: 048
  2. OXALIPLATIN. [Suspect]
     Active Substance: OXALIPLATIN
     Indication: COLORECTAL CANCER
     Route: 065
  3. FLUOROURACIL. [Suspect]
     Active Substance: FLUOROURACIL
     Indication: COLORECTAL CANCER
     Route: 065

REACTIONS (10)
  - Acute kidney injury [Unknown]
  - Sepsis [Unknown]
  - Lower gastrointestinal haemorrhage [Unknown]
  - Respiratory failure [Unknown]
  - Cardiac arrest [Unknown]
  - Device related thrombosis [Unknown]
  - Intestinal obstruction [Unknown]
  - Neuropathy peripheral [Unknown]
  - Endotracheal intubation [Unknown]
  - Deep vein thrombosis [Unknown]
